FAERS Safety Report 4549482-5 (Version None)
Quarter: 2005Q1

REPORT INFORMATION
  Report Type: 
  Country: None (occurrence: None)
  Receive Date: 20050110
  Receipt Date: 20050110
  Transmission Date: 20050727
  Serious: Yes (Other)
  Sender: FDA-Public Use
  Company Number: None

PATIENT
  Sex: Female
  Weight: 34 kg

DRUGS (1)
  1. CHILDREN'S IBUPROFEN [Suspect]
     Indication: IRRITABILITY
     Dosage: 100 MG PM ORAL
     Route: 048
     Dates: start: 20050105, end: 20050105

REACTIONS (2)
  - DYSPHONIA [None]
  - SWELLING FACE [None]
